FAERS Safety Report 13260658 (Version 1)
Quarter: 2017Q1

REPORT INFORMATION
  Report Type: Spontaneous
  Country: MX (occurrence: MX)
  Receive Date: 20170222
  Receipt Date: 20170222
  Transmission Date: 20170428
  Serious: Yes (Hospitalization, Disabling, Other)
  Sender: FDA-Public Use
  Company Number: MX-NOVOPROD-531845

PATIENT
  Age: 62 Year
  Sex: Female

DRUGS (1)
  1. RYZODEG 70/30 [Suspect]
     Active Substance: INSULIN ASPART\INSULIN DEGLUDEC
     Indication: PRODUCT USED FOR UNKNOWN INDICATION
     Dosage: 8 IN THE AFTERNOON
     Route: 065
     Dates: start: 20150427

REACTIONS (3)
  - Immobile [Not Recovered/Not Resolved]
  - Hospitalisation [Unknown]
  - Neuropathy peripheral [Not Recovered/Not Resolved]
